FAERS Safety Report 6417289-X (Version None)
Quarter: 2009Q4

REPORT INFORMATION
  Report Type: 
  Country: None (occurrence: None)
  Receive Date: 20091028
  Receipt Date: 20091015
  Transmission Date: 20100525
  Serious: Yes (Hospitalization)
  Sender: FDA-Public Use
  Company Number: PHHY2009IT44936

PATIENT
  Sex: Male
  Weight: 76 kg

DRUGS (3)
  1. CERTICAN [Suspect]
     Dosage: 1.25 MG/DAY
     Route: 048
     Dates: start: 20080613, end: 20090703
  2. NEORAL [Suspect]
     Dosage: 200 MG/DAY
     Route: 048
     Dates: start: 20080613, end: 20090703
  3. MEDROL [Suspect]
     Dosage: 4 MG, UNK
     Route: 048
     Dates: start: 20080613, end: 20090703

REACTIONS (1)
  - TRANSPLANT REJECTION [None]
